FAERS Safety Report 12203709 (Version 1)
Quarter: 2016Q1

REPORT INFORMATION
  Report Type: Spontaneous
  Country: US (occurrence: US)
  Receive Date: 20160323
  Receipt Date: 20160323
  Transmission Date: 20160526
  Serious: No
  Sender: FDA-Public Use
  Company Number: US-WATSON-2015-07892

PATIENT

DRUGS (1)
  1. BUPROPION HYDROCHLORIDE (WATSON LABORATORIES) [Suspect]
     Active Substance: BUPROPION HYDROCHLORIDE
     Indication: PRODUCT USED FOR UNKNOWN INDICATION
     Dosage: UNK, UNKNOWN
     Route: 065
     Dates: start: 201501

REACTIONS (7)
  - Motor dysfunction [Unknown]
  - Restless legs syndrome [Unknown]
  - Anxiety [Unknown]
  - Headache [Unknown]
  - Activities of daily living impaired [Unknown]
  - Disturbance in attention [Unknown]
  - Memory impairment [Unknown]
